FAERS Safety Report 22212322 (Version 1)
Quarter: 2023Q2

REPORT INFORMATION
  Report Type: Spontaneous
  Country: US (occurrence: None)
  Receive Date: 20230411
  Receipt Date: 20230411
  Transmission Date: 20230722
  Serious: No
  Sender: FDA-Public Use
  Company Number: None

PATIENT
  Age: 35 Year
  Sex: Male

DRUGS (1)
  1. XELODA [Suspect]
     Active Substance: CAPECITABINE
     Dosage: FREQUENCY : TWICE A DAY;?
     Route: 048

REACTIONS (13)
  - Asthenia [None]
  - Nausea [None]
  - Vomiting [None]
  - Asthenia [None]
  - Feeling cold [None]
  - Skin lesion [None]
  - Paraesthesia [None]
  - Dysgeusia [None]
  - Decreased appetite [None]
  - Paraesthesia ear [None]
  - Paraesthesia [None]
  - Pruritus [None]
  - Insomnia [None]

NARRATIVE: CASE EVENT DATE: 20230327
